FAERS Safety Report 13416426 (Version 2)
Quarter: 2017Q2

REPORT INFORMATION
  Report Type: Spontaneous
  Country: JP (occurrence: JP)
  Receive Date: 20170407
  Receipt Date: 20170426
  Transmission Date: 20170830
  Serious: Yes (Death, Hospitalization)
  Sender: FDA-Public Use
  Company Number: JP-PFIZER INC-2017154378

PATIENT
  Age: 59 Year
  Sex: Female

DRUGS (2)
  1. LYRICA [Suspect]
     Active Substance: PREGABALIN
  2. CELECOX [Suspect]
     Active Substance: CELECOXIB

REACTIONS (4)
  - Neoplasm progression [Fatal]
  - Back pain [Unknown]
  - Mobility decreased [Unknown]
  - Haemoglobin decreased [Unknown]
